FAERS Safety Report 4492477-0 (Version None)
Quarter: 2004Q4

REPORT INFORMATION
  Report Type: 
  Country: None (occurrence: None)
  Receive Date: 20041103
  Receipt Date: 20041103
  Transmission Date: 20050328
  Serious: Yes (Hospitalization)
  Sender: FDA-Public Use
  Company Number: None

PATIENT
  Age: 60 Year
  Sex: Male
  Weight: 83 kg

DRUGS (13)
  1. ZYVOX [Suspect]
     Indication: GLYCOPEPTIDE ANTIBIOTIC RESISTANT ENTEROCOCCAL INFECTION
     Dosage: 600 MG Q12 ORAL
     Route: 048
     Dates: start: 20040921, end: 20041014
  2. ZOSYN [Concomitant]
  3. OXYCONTIN [Concomitant]
  4. DAPTOMYCIN [Concomitant]
  5. CELEBREX [Concomitant]
  6. LOVENOX [Concomitant]
  7. ZINC SULFATE [Concomitant]
  8. OXYBUTININ [Concomitant]
  9. MULTI-VITAMIN [Concomitant]
  10. MEGACE [Concomitant]
  11. DILAUDID [Concomitant]
  12. KAOPECTATE [Concomitant]
  13. ACIDOPHILUS [Concomitant]

REACTIONS (2)
  - PLATELET COUNT DECREASED [None]
  - WHITE BLOOD CELL COUNT DECREASED [None]
